FAERS Safety Report 12323528 (Version 5)
Quarter: 2016Q3

REPORT INFORMATION
  Report Type: Spontaneous
  Country: US (occurrence: US)
  Receive Date: 20160502
  Receipt Date: 20160825
  Transmission Date: 20161109
  Serious: Yes (Hospitalization, Other)
  Sender: FDA-Public Use
  Company Number: US-ASTRAZENECA-2016SE44458

PATIENT
  Sex: Male
  Weight: 72.6 kg

DRUGS (7)
  1. TRAZODONE [Concomitant]
     Active Substance: TRAZODONE HYDROCHLORIDE
     Indication: INSOMNIA
  2. TUDORZA PRESSAIR [Suspect]
     Active Substance: ACLIDINIUM BROMIDE
     Indication: EMPHYSEMA
     Route: 055
     Dates: start: 2014
  3. SYMBICORT [Suspect]
     Active Substance: BUDESONIDE\FORMOTEROL FUMARATE DIHYDRATE
     Indication: EMPHYSEMA
     Dosage: 160MCG /4.5 MCG, TWO PUFFS, EVERY 12 HOURS
     Route: 055
     Dates: start: 2014
  4. TRAZODONE [Concomitant]
     Active Substance: TRAZODONE HYDROCHLORIDE
     Indication: DEPRESSION
  5. OXYGEN. [Concomitant]
     Active Substance: OXYGEN
     Dosage: 2 LITERS
  6. PROAIR HFA [Concomitant]
     Active Substance: ALBUTEROL SULFATE
     Dosage: AS REQUIRED
     Dates: start: 2014
  7. TUDORZA PRESSAIR [Suspect]
     Active Substance: ACLIDINIUM BROMIDE
     Indication: CHRONIC OBSTRUCTIVE PULMONARY DISEASE
     Route: 055
     Dates: start: 2014

REACTIONS (9)
  - Dyspnoea exertional [Unknown]
  - Product packaging quantity issue [Unknown]
  - Drug dose omission [Unknown]
  - Product quality issue [Unknown]
  - Intentional product misuse [Unknown]
  - Drug effect decreased [Unknown]
  - Dyspnoea [Unknown]
  - Chest pain [Unknown]
  - Pneumonia [Unknown]
